FAERS Safety Report 4878709-5 (Version None)
Quarter: 2006Q1

REPORT INFORMATION
  Report Type: 
  Country: None (occurrence: None)
  Receive Date: 20060112
  Receipt Date: 20060103
  Transmission Date: 20060701
  Serious: Yes (Death)
  Sender: FDA-Public Use
  Company Number: FR-JNJFOC-20060101214

PATIENT
  Age: 25 Year
  Sex: Male

DRUGS (2)
  1. RISPERDAL CONSTA [Suspect]
     Dosage: PATIENT HAD RECEIVED 3 INJECTIONS
     Route: 030
  2. XANAX [Concomitant]

REACTIONS (3)
  - CHEST PAIN [None]
  - DEATH [None]
  - PALLOR [None]
